FAERS Safety Report 8649892 (Version 3)
Quarter: 2012Q4

REPORT INFORMATION
  Report Type: 
  Country: US (occurrence: US)
  Receive Date: 20120705
  Receipt Date: 20121112
  Transmission Date: 20130627
  Serious: Yes (Other)
  Sender: FDA-Public Use
  Company Number: US-ASTRAZENECA-2012SE43339

PATIENT
  Age: 80 Year
  Sex: Female

DRUGS (1)
  1. TOPROL XL [Suspect]
     Route: 048

REACTIONS (7)
  - Femur fracture [Unknown]
  - Fall [Unknown]
  - Pelvic fracture [Unknown]
  - Balance disorder [Unknown]
  - Mobility decreased [Unknown]
  - Hearing impaired [Unknown]
  - Eye disorder [Unknown]
